FAERS Safety Report 10652679 (Version 13)
Quarter: 2016Q1

REPORT INFORMATION
  Report Type: Report from Study
  Country: US (occurrence: US)
  Receive Date: 20141215
  Receipt Date: 20160114
  Transmission Date: 20160525
  Serious: Yes (Hospitalization, Disabling, Other)
  Sender: FDA-Public Use
  Company Number: US-SA-2014SA169949

PATIENT
  Age: 62 Year
  Sex: Female

DRUGS (9)
  1. CLONAZEPAM. [Concomitant]
     Active Substance: CLONAZEPAM
     Indication: TREMOR
     Dosage: 0.5 MG
  2. AUBAGIO [Suspect]
     Active Substance: TERIFLUNOMIDE
     Indication: MULTIPLE SCLEROSIS
     Route: 048
     Dates: start: 20150324
  3. AUBAGIO [Suspect]
     Active Substance: TERIFLUNOMIDE
     Indication: MULTIPLE SCLEROSIS
     Route: 048
     Dates: start: 20140115
  4. AUBAGIO [Suspect]
     Active Substance: TERIFLUNOMIDE
     Indication: MULTIPLE SCLEROSIS
     Route: 048
     Dates: start: 2013
  5. TECFIDERA [Concomitant]
     Active Substance: DIMETHYL FUMARATE
     Indication: MULTIPLE SCLEROSIS
     Dates: start: 20140601, end: 20140615
  6. COUMADIN [Concomitant]
     Active Substance: WARFARIN SODIUM
  7. AUBAGIO [Suspect]
     Active Substance: TERIFLUNOMIDE
     Indication: MULTIPLE SCLEROSIS
     Route: 048
     Dates: start: 20140616, end: 20141218
  8. BACLOFEN. [Concomitant]
     Active Substance: BACLOFEN
     Indication: TREMOR
     Dosage: 10 MG
  9. VITAMIN E [Concomitant]
     Active Substance: .ALPHA.-TOCOPHEROL
     Indication: CARDIAC DISORDER
     Dosage: 1000 IU

REACTIONS (22)
  - Pain in extremity [Unknown]
  - Loss of consciousness [Unknown]
  - Contusion [Unknown]
  - Pleural effusion [Unknown]
  - Memory impairment [Not Recovered/Not Resolved]
  - Central nervous system lesion [Unknown]
  - Developmental hip dysplasia [Unknown]
  - Unevaluable event [Unknown]
  - Road traffic accident [Unknown]
  - Thrombosis [Recovering/Resolving]
  - Muscular weakness [Recovered/Resolved]
  - Memory impairment [Unknown]
  - Vitamin B12 decreased [Unknown]
  - Blood pressure decreased [Unknown]
  - Syncope [Unknown]
  - Pulmonary embolism [Recovering/Resolving]
  - Colonoscopy [Unknown]
  - Confusional state [Not Recovered/Not Resolved]
  - Arthralgia [Unknown]
  - Sinus headache [Not Recovered/Not Resolved]
  - Blood pressure increased [Unknown]
  - Ill-defined disorder [Unknown]

NARRATIVE: CASE EVENT DATE: 20141113
